FAERS Safety Report 6436730-X (Version None)
Quarter: 2009Q4

REPORT INFORMATION
  Report Type: 
  Country: None (occurrence: None)
  Receive Date: 20091104
  Receipt Date: 20091021
  Transmission Date: 20100525
  Serious: Yes (Other)
  Sender: FDA-Public Use
  Company Number: 20091021CINRY1209

PATIENT
  Age: 38 Year
  Sex: Female

DRUGS (3)
  1. CINRYZE [Suspect]
     Indication: HEREDITARY ANGIOEDEMA
     Dosage: 1000 UNIT, 1 IN 4 D, INTRAVENOUS, 333.3333 UNIT (1000 UNIT, 1 IN 3 D), INTRAVENOUS
     Route: 042
     Dates: start: 20080901, end: 20091001
  2. CINRYZE [Suspect]
     Indication: HEREDITARY ANGIOEDEMA
     Dosage: 1000 UNIT, 1 IN 4 D, INTRAVENOUS, 333.3333 UNIT (1000 UNIT, 1 IN 3 D), INTRAVENOUS
     Route: 042
     Dates: start: 20091001
  3. COUMADIN [Concomitant]

REACTIONS (4)
  - ANGIOEDEMA [None]
  - INTERNATIONAL NORMALISED RATIO INCREASED [None]
  - STRESS [None]
  - VENOUS THROMBOSIS [None]
